FAERS Safety Report 12652239 (Version 3)
Quarter: 2016Q3

REPORT INFORMATION
  Report Type: Spontaneous
  Country: US (occurrence: US)
  Receive Date: 20160815
  Receipt Date: 20160912
  Transmission Date: 20161109
  Serious: Yes (Death)
  Sender: FDA-Public Use
  Company Number: US-SMITH AND NEPHEW, INC-2016SMT00665

PATIENT
  Sex: Male

DRUGS (20)
  1. FUROSEMIDE. [Concomitant]
     Active Substance: FUROSEMIDE
  2. LANTUS [Concomitant]
     Active Substance: INSULIN GLARGINE
  3. LABETALOL [Concomitant]
     Active Substance: LABETALOL\LABETALOL HYDROCHLORIDE
  4. VITAMIN D [Concomitant]
     Active Substance: CHOLECALCIFEROL
  5. AMLODIPINE [Concomitant]
     Active Substance: AMLODIPINE BESYLATE
  6. ADVAIR HFA [Concomitant]
     Active Substance: FLUTICASONE PROPIONATE\SALMETEROL XINAFOATE
  7. ACETAMINOPHEN. [Concomitant]
     Active Substance: ACETAMINOPHEN
  8. ALBUTEROL. [Concomitant]
     Active Substance: ALBUTEROL
  9. XANAX [Concomitant]
     Active Substance: ALPRAZOLAM
  10. VITAMIN C [Concomitant]
     Active Substance: ASCORBIC ACID
  11. LEVAQUIN [Concomitant]
     Active Substance: LEVOFLOXACIN
  12. LORATADINE. [Concomitant]
     Active Substance: LORATADINE
  13. LOSARTAN. [Concomitant]
     Active Substance: LOSARTAN
  14. REGRANEX [Suspect]
     Active Substance: BECAPLERMIN
     Indication: DIABETIC FOOT
     Dosage: UNK, 1X/DAY
     Route: 061
     Dates: start: 20160525
  15. GABAPENTIN. [Concomitant]
     Active Substance: GABAPENTIN
  16. NOVOLOG [Concomitant]
     Active Substance: INSULIN ASPART
  17. MULTIVITAMIN [Concomitant]
     Active Substance: VITAMINS
  18. HCTZ [Concomitant]
     Active Substance: HYDROCHLOROTHIAZIDE
  19. COMBIVENT [Concomitant]
     Active Substance: ALBUTEROL SULFATE\IPRATROPIUM BROMIDE
  20. ZINC GLUCONATE [Concomitant]
     Active Substance: ZINC GLUCONATE

REACTIONS (1)
  - Death [Fatal]

NARRATIVE: CASE EVENT DATE: 2016
